FAERS Safety Report 26137521 (Version 1)
Quarter: 2025Q4

REPORT INFORMATION
  Report Type: Spontaneous
  Country: US (occurrence: US)
  Receive Date: 20251209
  Receipt Date: 20251209
  Transmission Date: 20260118
  Serious: No
  Sender: MERCK SHARP & DOHME LLC
  Company Number: US-009507513-2351261

PATIENT
  Sex: Female
  Weight: 64.864 kg

DRUGS (2)
  1. KEYTRUDA [Suspect]
     Active Substance: PEMBROLIZUMAB
     Indication: Endometrial neoplasm
     Dosage: 100 MG/4ML VIAL
  2. LENVATINIB [Suspect]
     Active Substance: LENVATINIB
     Indication: Endometrial neoplasm
     Dosage: STRENGTH: 10 MG?5 DAY PK - COMM
     Route: 048

REACTIONS (4)
  - Rhinorrhoea [Not Recovered/Not Resolved]
  - Fatigue [Recovering/Resolving]
  - Abdominal discomfort [Recovering/Resolving]
  - Laboratory test abnormal [Not Recovered/Not Resolved]
